FAERS Safety Report 17374455 (Version 1)
Quarter: 2020Q1

REPORT INFORMATION
  Report Type: Spontaneous
  Country: IT (occurrence: IT)
  Receive Date: 20200206
  Receipt Date: 20200206
  Transmission Date: 20200409
  Serious: Yes (Other)
  Sender: FDA-Public Use
  Company Number: IT-UNICHEM PHARMACEUTICALS (USA) INC-UCM202002-000159

PATIENT
  Age: 30 Year
  Sex: Female

DRUGS (4)
  1. PHENOBARBITAL. [Concomitant]
     Active Substance: PHENOBARBITAL
     Indication: PRODUCT USED FOR UNKNOWN INDICATION
  2. DIVALPROEX SODIUM. [Suspect]
     Active Substance: DIVALPROEX SODIUM
     Indication: EPILEPSY
  3. RISPERIDONE. [Suspect]
     Active Substance: RISPERIDONE
     Indication: PRODUCT USED FOR UNKNOWN INDICATION
  4. CLONAZEPAM. [Suspect]
     Active Substance: CLONAZEPAM
     Indication: PRODUCT USED FOR UNKNOWN INDICATION

REACTIONS (2)
  - Breast hyperplasia [Recovered/Resolved]
  - Drug interaction [Recovered/Resolved]
